FAERS Safety Report 20712275 (Version 1)
Quarter: 2022Q2

REPORT INFORMATION
  Report Type: Report from Study
  Country: NL (occurrence: NL)
  Receive Date: 20220415
  Receipt Date: 20220415
  Transmission Date: 20220720
  Serious: Yes (Death)
  Sender: FDA-Public Use
  Company Number: NL-ABBVIE-22K-114-4360295-00

PATIENT
  Sex: Male

DRUGS (5)
  1. CARBIDOPA\LEVODOPA [Suspect]
     Active Substance: CARBIDOPA\LEVODOPA
     Indication: Parkinson^s disease
     Route: 050
     Dates: start: 20160801
  2. CARBIDOPA\LEVODOPA [Suspect]
     Active Substance: CARBIDOPA\LEVODOPA
     Dosage: MD: 3.2 ML, CD: 2.4  ML/H, ED: 1.1 ML, CND: 1.2 ML/H
     Route: 050
  3. RIVASTIGMINE [Concomitant]
     Active Substance: RIVASTIGMINE
     Indication: Memory impairment
     Dates: start: 20190301
  4. CITALOPRAM [Concomitant]
     Active Substance: CITALOPRAM HYDROBROMIDE
     Indication: Antidepressant therapy
     Route: 048
     Dates: start: 20190801
  5. PYRIDOXINE [Concomitant]
     Active Substance: PYRIDOXINE
     Indication: Parkinson^s disease
     Route: 048
     Dates: start: 20180701

REACTIONS (1)
  - Cardiac disorder [Fatal]
